FAERS Safety Report 5270730-0 (Version None)
Quarter: 2007Q1

REPORT INFORMATION
  Report Type: 
  Country: None (occurrence: None)
  Receive Date: 20070319
  Receipt Date: 20070319
  Transmission Date: 20070707
  Serious: Yes (Hospitalization)
  Sender: FDA-Public Use
  Company Number: None

PATIENT
  Age: 80 Year
  Sex: Female
  Weight: 77.5 kg

DRUGS (8)
  1. CRESTOR [Suspect]
     Indication: DYSLIPIDAEMIA
     Dosage: 40 MG DAILY PO
     Route: 048
  2. CRESTOR [Suspect]
     Indication: MYOCARDIAL INFARCTION
     Dosage: 40 MG DAILY PO
     Route: 048
  3. CRESTOR [Concomitant]
  4. FOSAMAX [Concomitant]
  5. ARICEPT [Concomitant]
  6. ASPIRIN [Concomitant]
  7. ZOLOFT [Concomitant]
  8. NOVOLOG MIX 70/30 [Concomitant]

REACTIONS (4)
  - DEHYDRATION [None]
  - FALL [None]
  - RENAL FAILURE ACUTE [None]
  - RHABDOMYOLYSIS [None]
